FAERS Safety Report 6955477-4 (Version None)
Quarter: 2010Q3

REPORT INFORMATION
  Report Type: 
  Country: None (occurrence: None)
  Receive Date: 20100830
  Receipt Date: 20100818
  Transmission Date: 20110219
  Serious: Yes (Hospitalization)
  Sender: FDA-Public Use
  Company Number: JP-PFIZER INC-2010105766

PATIENT
  Age: 71 Year
  Sex: Male

DRUGS (8)
  1. NOVASTAN [Suspect]
     Indication: THROMBOTIC CEREBRAL INFARCTION
     Dosage: UNK
     Route: 041
     Dates: start: 20100621, end: 20100628
  2. RADICUT [Suspect]
     Indication: THROMBOTIC CEREBRAL INFARCTION
     Dosage: 30 MG, 2X/DAY
     Route: 041
     Dates: start: 20100621, end: 20100703
  3. PLETAL [Suspect]
     Indication: THROMBOTIC CEREBRAL INFARCTION
     Dosage: UNK
     Route: 048
     Dates: start: 20100624
  4. FLUVASTATIN [Suspect]
     Indication: HYPERLIPIDAEMIA
     Route: 048
  5. GASTER [Suspect]
     Route: 065
  6. KETAS [Suspect]
     Route: 065
  7. GLYCEOL [Concomitant]
     Indication: THROMBOTIC CEREBRAL INFARCTION
     Dosage: UNK
     Route: 041
     Dates: start: 20100621, end: 20100625
  8. ACETYLSALICYLIC ACID [Concomitant]
     Indication: THROMBOTIC CEREBRAL INFARCTION
     Dosage: UNK
     Route: 048
     Dates: start: 20100701

REACTIONS (1)
  - HEPATIC FUNCTION ABNORMAL [None]
